FAERS Safety Report 12289839 (Version 1)
Quarter: 2016Q2

REPORT INFORMATION
  Report Type: Report from Study
  Country: US (occurrence: US)
  Receive Date: 20160421
  Receipt Date: 20160421
  Transmission Date: 20160815
  Serious: Yes (Hospitalization, Other)
  Sender: FDA-Public Use
  Company Number: ADR-2015-01046

PATIENT
  Age: 51 Year
  Sex: Female

DRUGS (9)
  1. CLONIDINE. [Suspect]
     Active Substance: CLONIDINE
     Dosage: 199.87 MCG/DAY
     Route: 037
     Dates: start: 20150522, end: 20150605
  2. CLONIDINE. [Suspect]
     Active Substance: CLONIDINE
     Dosage: 220.34 MCG/DAY
     Dates: start: 20150605
  3. COMPOUNDED BACLOFEN [Suspect]
     Active Substance: BACLOFEN
     Dosage: 224.75MCG/DAY
     Route: 037
     Dates: start: 20150522, end: 20150605
  4. FENTANYL. [Suspect]
     Active Substance: FENTANYL
     Dosage: 249.62MCG/DAY
     Route: 037
     Dates: start: 20150522, end: 20150605
  5. FENTANYL. [Suspect]
     Active Substance: FENTANYL
     Dosage: 275.18 MCG/DAY
     Dates: start: 20150605
  6. CLONIDINE. [Suspect]
     Active Substance: CLONIDINE
     Dosage: 168.09 MCG/DAY
     Route: 037
  7. COMPOUNDED BACLOFEN [Suspect]
     Active Substance: BACLOFEN
     Dosage: 189.05 MCG/DAY
     Route: 037
  8. FENTANYL. [Suspect]
     Active Substance: FENTANYL
     Dosage: 210 MCG/DAY
     Route: 037
  9. COMPOUNDED BACLOFEN [Suspect]
     Active Substance: BACLOFEN
     Dosage: 247.76 MCG/DAY
     Dates: start: 20150605

REACTIONS (4)
  - Culture wound positive [Recovered/Resolved]
  - Implant site dehiscence [Recovered/Resolved]
  - Implant site infection [Recovered/Resolved]
  - Medical device site discharge [Recovered/Resolved]

NARRATIVE: CASE EVENT DATE: 20150515
